FAERS Safety Report 4698232-0 (Version None)
Quarter: 2005Q2

REPORT INFORMATION
  Report Type: 
  Country: None (occurrence: None)
  Receive Date: 20050621
  Receipt Date: 20050608
  Transmission Date: 20051028
  Serious: Yes (Hospitalization, Disabling, Other)
  Sender: FDA-Public Use
  Company Number: 2004239035US

PATIENT
  Age: 69 Year
  Sex: Female
  Weight: 108.8633 kg

DRUGS (3)
  1. CELEBREX [Suspect]
     Indication: PSORIATIC ARTHROPATHY
     Dosage: 200 MG (200 MG, 1 IN 1 D),
     Dates: start: 20030801, end: 20040214
  2. SYNTHROID [Concomitant]
  3. ZESTORETIC [Concomitant]

REACTIONS (14)
  - ABASIA [None]
  - ATRIAL FIBRILLATION [None]
  - CHEST PAIN [None]
  - DRUG HYPERSENSITIVITY [None]
  - DRUG WITHDRAWAL SYNDROME [None]
  - DYSPNOEA [None]
  - HEART RATE INCREASED [None]
  - HYPERSENSITIVITY [None]
  - IRRITABILITY [None]
  - OEDEMA PERIPHERAL [None]
  - PALPITATIONS [None]
  - RASH [None]
  - SKIN DISCOLOURATION [None]
  - TREMOR [None]
